FAERS Safety Report 21059272 (Version 1)
Quarter: 2022Q3

REPORT INFORMATION
  Report Type: Spontaneous
  Country: GB (occurrence: GB)
  Receive Date: 20220708
  Receipt Date: 20220708
  Transmission Date: 20221027
  Serious: Yes (Other)
  Sender: FDA-Public Use
  Company Number: None

PATIENT
  Age: 45 Year
  Sex: Female
  Weight: 143 kg

DRUGS (11)
  1. DULOXETINE HYDROCHLORIDE [Suspect]
     Active Substance: DULOXETINE HYDROCHLORIDE
     Indication: Ill-defined disorder
     Dosage: UNK UNK, UNKNOWN
     Route: 065
     Dates: start: 20211124
  2. CANDESARTAN [Concomitant]
     Active Substance: CANDESARTAN
     Indication: Ill-defined disorder
     Dosage: 1 DOSAGE FORM, DAILY
     Route: 065
     Dates: start: 20211221
  3. CEPHALEXIN [Concomitant]
     Active Substance: CEPHALEXIN
     Indication: Ill-defined disorder
     Dosage: 1 DOSAGE FORM, BID (ONE TWO TIMES/DAY)
     Route: 065
     Dates: start: 20220509, end: 20220514
  4. CHLORHEXIDINE GLUCONATE [Concomitant]
     Active Substance: CHLORHEXIDINE GLUCONATE
     Indication: Ill-defined disorder
     Dosage: UNK, DAILY (DAILY AS LIQUID SOAP IN THE BATH, SHOWER)
     Route: 065
     Dates: start: 20211221
  5. COCODAMOL [Concomitant]
     Active Substance: ACETAMINOPHEN\CODEINE PHOSPHATE
     Indication: Ill-defined disorder
     Dosage: UNK, OTHER (ONE OR TWO FOUR TIMES DAILY)
     Route: 065
     Dates: start: 20211221
  6. ETORICOXIB [Concomitant]
     Active Substance: ETORICOXIB
     Indication: Ill-defined disorder
     Dosage: UNK, DAILY (TAKE ONE ONCE DAILY WITH FOOD)
     Route: 065
     Dates: start: 20211221
  7. FEXOFENADINE [Concomitant]
     Active Substance: FEXOFENADINE HYDROCHLORIDE
     Indication: Ill-defined disorder
     Dosage: UNK, DAILY (TAKE ONE DAILY AS REQUIRED)
     Dates: start: 20211221
  8. FEXOFENADINE [Concomitant]
     Active Substance: FEXOFENADINE HYDROCHLORIDE
     Indication: Hypersensitivity
  9. LANSOPRAZOLE [Concomitant]
     Active Substance: LANSOPRAZOLE
     Indication: Ill-defined disorder
     Dosage: UNK, DAILY (TAKE ONE EACH MORNING)
     Route: 065
     Dates: start: 20211221
  10. LANSOPRAZOLE [Concomitant]
     Active Substance: LANSOPRAZOLE
     Indication: Gastric pH decreased
  11. METRONIDAZOLE [Concomitant]
     Active Substance: METRONIDAZOLE
     Indication: Ill-defined disorder
     Dosage: 1 DOSAGE FORM, TID (TAKE ONE THREE TIMES A DAY)
     Route: 065
     Dates: start: 20220509, end: 20220514

REACTIONS (1)
  - Drug hypersensitivity [Unknown]

NARRATIVE: CASE EVENT DATE: 20220624
